FAERS Safety Report 7387358-9 (Version None)
Quarter: 2011Q1

REPORT INFORMATION
  Report Type: 
  Country: None (occurrence: None)
  Receive Date: 20110331
  Receipt Date: 20110317
  Transmission Date: 20110831
  Serious: Yes (Hospitalization)
  Sender: FDA-Public Use
  Company Number: PHHO2011FR01283

PATIENT
  Sex: Male
  Weight: 91 kg

DRUGS (21)
  1. MOPRAL [Concomitant]
  2. FORTUM [Concomitant]
     Indication: PYELONEPHRITIS
  3. NEORECORMON [Concomitant]
  4. SODIUM BICARBONATE [Concomitant]
  5. CELLCEPT [Suspect]
     Indication: RENAL TRANSPLANT
     Dosage: 3 G, DAILY
     Dates: start: 20101106, end: 20101217
  6. CELLCEPT [Suspect]
     Dosage: 250 MG, BID
     Route: 048
     Dates: start: 20100203
  7. ROCEPHIN [Concomitant]
  8. PREVISCAN [Concomitant]
  9. LOVENOX [Concomitant]
  10. TEMERIT [Concomitant]
  11. CELLCEPT [Suspect]
     Dosage: 2 G, DAILY
     Dates: start: 20101218, end: 20101228
  12. SOLUPRED [Concomitant]
     Indication: RENAL TRANSPLANT
     Dosage: 10 MG, DAILY
     Dates: start: 20101107
  13. TARDYFERON [Concomitant]
  14. OFLOCET [Concomitant]
  15. BACTRIM [Concomitant]
  16. SANDIMMUNE [Suspect]
     Indication: RENAL TRANSPLANT
     Dosage: 4 MG, DAILY
     Route: 048
     Dates: start: 20101111, end: 20101223
  17. PHOSPHORUS [Concomitant]
  18. CIFLOX [Concomitant]
     Indication: PYELONEPHRITIS
  19. KALEORID [Concomitant]
  20. PERFALGAN [Concomitant]
  21. SMECTA ^DAE WOONG^ [Concomitant]

REACTIONS (24)
  - VARICELLA [None]
  - OEDEMA MUCOSAL [None]
  - STAPHYLOCOCCAL SEPSIS [None]
  - CYTOLYTIC HEPATITIS [None]
  - DECUBITUS ULCER [None]
  - OEDEMA PERIPHERAL [None]
  - PNEUMONIA HERPES VIRAL [None]
  - CONFUSIONAL STATE [None]
  - DIARRHOEA [None]
  - FAECAL INCONTINENCE [None]
  - SKIN ULCER [None]
  - PLEURAL EFFUSION [None]
  - COUGH [None]
  - PYREXIA [None]
  - CENTRAL NERVOUS SYSTEM INFECTION [None]
  - IMMUNE SYSTEM DISORDER [None]
  - BLADDER DILATATION [None]
  - LEUKOCYTOSIS [None]
  - OVERDOSE [None]
  - DYSPNOEA AT REST [None]
  - ORTHOPNOEA [None]
  - MENINGEAL DISORDER [None]
  - GASTROINTESTINAL ISCHAEMIA [None]
  - JOINT STIFFNESS [None]
